FAERS Safety Report 8299523-7 (Version None)
Quarter: 2012Q2

REPORT INFORMATION
  Report Type: 
  Country: None (occurrence: None)
  Receive Date: 20120419
  Receipt Date: 20120403
  Transmission Date: 20120825
  Serious: Yes (Other)
  Sender: FDA-Public Use
  Company Number: CHPA2012US008758

PATIENT
  Age: 69 Year
  Sex: Female

DRUGS (1)
  1. EXCEDRIN (MIGRAINE) [Suspect]
     Indication: FIBROMYALGIA
     Dosage: 2 DF, BID
     Route: 048

REACTIONS (2)
  - GASTRIC ULCER [None]
  - THERAPEUTIC RESPONSE UNEXPECTED [None]
